FAERS Safety Report 22363942 (Version 1)
Quarter: 2023Q2

REPORT INFORMATION
  Report Type: Spontaneous
  Country: US (occurrence: US)
  Receive Date: 20230525
  Receipt Date: 20230525
  Transmission Date: 20230721
  Serious: Yes (Other)
  Sender: FDA-Public Use
  Company Number: US-CBL-001875

PATIENT
  Age: 8 Year
  Sex: Female

DRUGS (3)
  1. MYCOPHENOLATE MOFETIL [Suspect]
     Active Substance: MYCOPHENOLATE MOFETIL
     Indication: Lupus anticoagulant hypoprothrombinaemia syndrome
     Route: 065
  2. CYCLOPHOSPHAMIDE [Suspect]
     Active Substance: CYCLOPHOSPHAMIDE
     Indication: Lupus anticoagulant hypoprothrombinaemia syndrome
     Route: 065
  3. RITUXIMAB [Suspect]
     Active Substance: RITUXIMAB
     Indication: Lupus anticoagulant hypoprothrombinaemia syndrome
     Route: 065

REACTIONS (3)
  - Arthritis [Unknown]
  - Lupus nephritis [Unknown]
  - Product use in unapproved indication [Unknown]
